FAERS Safety Report 5136095-X (Version None)
Quarter: 2006Q4

REPORT INFORMATION
  Report Type: 
  Country: None (occurrence: None)
  Receive Date: 20061027
  Receipt Date: 20060817
  Transmission Date: 20070319
  Serious: Yes (Death, Hospitalization)
  Sender: FDA-Public Use
  Company Number: DE-SOLVAY-00306002714

PATIENT
  Age: 19668 Day
  Sex: Male
  Weight: 63 kg

DRUGS (3)
  1. KREON [Suspect]
     Indication: PANCREATIC INSUFFICIENCY
     Dosage: DAILY DOSE:  UNKNOWN
     Route: 065
     Dates: start: 20060406
  2. PANTOZOL 20MG [Concomitant]
     Indication: GASTRITIS
     Dosage: DAILY DOSE: 20 MILLIGRAM(S)
     Route: 048
     Dates: start: 20030411
  3. LANTUS-INSULINE [Concomitant]
     Indication: DIABETES MELLITUS
     Dosage: DAILY DOSE: 20 INTERNATIONAL UNIT(S)
     Route: 058
     Dates: start: 20030411

REACTIONS (1)
  - DEATH [None]
